FAERS Safety Report 8007652-8 (Version None)
Quarter: 2011Q4

REPORT INFORMATION
  Report Type: 
  Country: None (occurrence: None)
  Receive Date: 20111227
  Receipt Date: 20111216
  Transmission Date: 20120403
  Serious: Yes (Other)
  Sender: FDA-Public Use
  Company Number: US-BAYER-2011-055952

PATIENT
  Age: 33 Year
  Sex: Female
  Weight: 56 kg

DRUGS (11)
  1. NSAID'S [Concomitant]
  2. VITAMIN TAB [Concomitant]
  3. ADVIL MIGRAINE LIQUI-GELS [Concomitant]
  4. ASCORBIC ACID [Concomitant]
  5. IBUPROFEN [Concomitant]
     Indication: NASOPHARYNGITIS
     Dosage: UNK UNK, PRN
  6. VITAMIN B COMPLEX CAP [Concomitant]
     Dosage: UNK
     Dates: start: 20090924, end: 20091013
  7. VITAMIN C [Concomitant]
     Dosage: UNK
     Dates: start: 20090924, end: 20091013
  8. ULTRAM [Concomitant]
     Indication: FIBROMYALGIA
     Dosage: UNK
     Dates: start: 20050101
  9. MULTI-VITAMIN [Concomitant]
     Dosage: UNK
     Dates: start: 20090924, end: 20091013
  10. SUDAFED 12 HOUR [Concomitant]
     Indication: NASOPHARYNGITIS
     Dosage: UNK UNK, PRN
  11. YAZ [Suspect]
     Indication: CONTRACEPTION
     Dosage: UNK
     Dates: start: 20090501, end: 20091101

REACTIONS (6)
  - ABDOMINAL PAIN [None]
  - CHOLECYSTITIS CHRONIC [None]
  - CHOLECYSTITIS [None]
  - BILIARY DYSKINESIA [None]
  - ABDOMINAL PAIN UPPER [None]
  - INJURY [None]
